FAERS Safety Report 9542826 (Version 1)
Quarter: 2013Q2

REPORT INFORMATION
  Report Type: Spontaneous
  Country: US (occurrence: None)
  Receive Date: 20130524
  Receipt Date: 20130524
  Transmission Date: 20140414
  Serious: Yes (Other)
  Sender: FDA-Public Use
  Company Number: PHEH2013US000678

PATIENT
  Sex: Female
  Weight: 49.9 kg

DRUGS (17)
  1. GILENYA (FINGOLIMOD) CAPSULE, 0.5MG [Suspect]
     Route: 048
  2. AMPYRA (FAMPRIDINE) TABLET, 10MG [Concomitant]
  3. THEOPHYLLINE [Suspect]
  4. SINGULAIR [Concomitant]
  5. ADVAIR DISKUS (FLUTICASONE PROPIONATE, SALMETEROL XINAFOATE) [Concomitant]
  6. PROVENTIL (SALBUTAMOL SULFATE) [Concomitant]
  7. BACLOFEN (BACLOFEN) [Concomitant]
  8. ZANAFLEX (TIZANIDINE HYDROCHLORIDE) [Concomitant]
  9. CLONDAZEPAM (CLONAZEPAM) [Concomitant]
  10. LEXPRO (ESCITALOPRM OXALATE) [Concomitant]
  11. MULTIVITAMIN (ASCORBIC ACID, CALCIUM PANTOTHENATE, ERGOCALCIFEROL, NICOTINAMIDE, PYRIDOXINE HYDROCHLORIDE, RETINOL, RIBOFLAVIN, THIAMINE HYDROCHLORIDE) [Concomitant]
  12. B COMPLEX (NICOTINAMIDE, PYRIDOXINE HYDROCHLORIDE, RIBOFLAVIN, THIAMINE HYDROCHLORIDE) [Concomitant]
  13. B 12 (CYANOCOBALAMIN) [Concomitant]
  14. CALCIUM D (CALCIUM CARBONATE, COLECALCIFEROL) [Concomitant]
  15. VITAMIN D (ERGOCALCIFEROL) [Concomitant]
  16. LOVAZA (OMEGA-3-ACID ETHYL ESTER) [Concomitant]
  17. VITAMIN C [Concomitant]

REACTIONS (5)
  - Nasopharyngitis [None]
  - Vision blurred [None]
  - Muscle spasms [None]
  - Memory impairment [None]
  - Urinary tract infection [None]
